FAERS Safety Report 10335702 (Version 1)
Quarter: 2014Q3

REPORT INFORMATION
  Report Type: Spontaneous
  Country: US (occurrence: US)
  Receive Date: 20140723
  Receipt Date: 20140723
  Transmission Date: 20150326
  Serious: No
  Sender: FDA-Public Use
  Company Number: US-BRISTOL-MYERS SQUIBB COMPANY-19021617

PATIENT
  Age: 75 Year
  Sex: Male
  Weight: 85.03 kg

DRUGS (3)
  1. CALCIUM [Concomitant]
     Active Substance: CALCIUM
  2. ASPIRIN. [Concomitant]
     Active Substance: ASPIRIN
  3. COUMADIN [Suspect]
     Active Substance: WARFARIN SODIUM
     Dosage: 1DF:2 TABS ALL THE DAYS EXCEPT 2.5 TABS ON WED

REACTIONS (2)
  - Weight decreased [Unknown]
  - Renal cyst [Unknown]
